FAERS Safety Report 16807610 (Version 1)
Quarter: 2019Q3

REPORT INFORMATION
  Report Type: Spontaneous
  Country: CN (occurrence: CN)
  Receive Date: 20190914
  Receipt Date: 20190914
  Transmission Date: 20191005
  Serious: Yes (Hospitalization)
  Sender: FDA-Public Use
  Company Number: CN-ROCHE-2401604

PATIENT
  Age: 65 Year
  Sex: Female
  Weight: 67 kg

DRUGS (6)
  1. VINDESINE SULFATE [Concomitant]
     Active Substance: VINDESINE SULFATE
     Indication: B-CELL LYMPHOMA
     Route: 042
     Dates: start: 20190613, end: 20190726
  2. MABTHERA [Suspect]
     Active Substance: RITUXIMAB
     Indication: B-CELL LYMPHOMA
     Route: 041
     Dates: start: 20190612, end: 20190725
  3. PREDNISONE ACETATE [Concomitant]
     Active Substance: PREDNISONE ACETATE
     Indication: B-CELL LYMPHOMA
     Route: 048
     Dates: start: 20190612
  4. SODIUM CHLORIDE. [Concomitant]
     Active Substance: SODIUM CHLORIDE
     Route: 041
     Dates: start: 20190612, end: 20190725
  5. CYCLOPHOSPHAMIDE. [Concomitant]
     Active Substance: CYCLOPHOSPHAMIDE
     Indication: B-CELL LYMPHOMA
     Route: 041
     Dates: start: 20190613, end: 20190726
  6. PIRARUBICIN HYDROCHLORIDE [Concomitant]
     Active Substance: PIRARUBICIN HYDROCHLORIDE
     Indication: B-CELL LYMPHOMA
     Route: 041
     Dates: start: 20190613, end: 20190726

REACTIONS (2)
  - Pulmonary fibrosis [Recovering/Resolving]
  - Pneumonitis [Recovering/Resolving]

NARRATIVE: CASE EVENT DATE: 20190811
